FAERS Safety Report 21126860 (Version 1)
Quarter: 2022Q3

REPORT INFORMATION
  Report Type: Spontaneous
  Country: US (occurrence: None)
  Receive Date: 20220725
  Receipt Date: 20220725
  Transmission Date: 20221027
  Serious: Yes (unspecified)
  Sender: FDA-Public Use
  Company Number: None

PATIENT
  Age: 36 Year
  Sex: Female
  Weight: 103.5 kg

DRUGS (7)
  1. FYCOMPA [Suspect]
     Active Substance: PERAMPANEL
     Indication: Seizure
     Dosage: OTHER QUANTITY : 1 TABLET(S);?FREQUENCY : AT BEDTIME;?
     Route: 048
  2. DIVALPROEX SODIUM [Concomitant]
     Active Substance: DIVALPROEX SODIUM
  3. ZONISAMIDE [Concomitant]
     Active Substance: ZONISAMIDE
  4. CLONAZEPAM [Concomitant]
  5. ONDANSETRON [Concomitant]
     Active Substance: ONDANSETRON
  6. DICYCLOMINE [Concomitant]
     Active Substance: DICYCLOMINE HYDROCHLORIDE
  7. CLOBAZAM [Concomitant]
     Active Substance: CLOBAZAM

REACTIONS (15)
  - Aggression [None]
  - Homicidal ideation [None]
  - Anger [None]
  - Memory impairment [None]
  - Mood altered [None]
  - Suicidal ideation [None]
  - Restlessness [None]
  - Mania [None]
  - Dizziness [None]
  - Vertigo [None]
  - Nausea [None]
  - Gait disturbance [None]
  - Weight increased [None]
  - Contusion [None]
  - Headache [None]

NARRATIVE: CASE EVENT DATE: 20220622
